FAERS Safety Report 4464043-4 (Version None)
Quarter: 2004Q4

REPORT INFORMATION
  Report Type: 
  Country: None (occurrence: None)
  Receive Date: 20041001
  Receipt Date: 20040615
  Transmission Date: 20050328
  Serious: Yes (Other)
  Sender: FDA-Public Use
  Company Number: US-ABBOTT-04P-163-0263947-00

PATIENT
  Age: 19 Year
  Sex: Male

DRUGS (1)
  1. DILAUDID-HP [Suspect]
     Indication: PAIN
     Dosage: 10 MG/ML, 50 ML
     Route: 050
     Dates: start: 20021211

REACTIONS (3)
  - PRURITUS [None]
  - RESPIRATORY ARREST [None]
  - TRAUMATIC BRAIN INJURY [None]
